FAERS Safety Report 12996789 (Version 1)
Quarter: 2016Q4

REPORT INFORMATION
  Report Type: Spontaneous
  Country: CA (occurrence: CA)
  Receive Date: 20161205
  Receipt Date: 20161205
  Transmission Date: 20170207
  Serious: Yes (Other)
  Sender: FDA-Public Use
  Company Number: CA-ROCHE-1862236

PATIENT
  Age: 19 Year
  Sex: Female

DRUGS (6)
  1. XOLAIR [Suspect]
     Active Substance: OMALIZUMAB
     Route: 058
     Dates: start: 20150422
  2. XOLAIR [Suspect]
     Active Substance: OMALIZUMAB
     Indication: ASTHMA
     Dosage: 225 MG, BIW
     Route: 058
     Dates: start: 20141008
  3. XOLAIR [Suspect]
     Active Substance: OMALIZUMAB
     Dosage: UNK
     Route: 058
     Dates: start: 20150408
  4. XOLAIR [Suspect]
     Active Substance: OMALIZUMAB
     Dosage: UNK
     Route: 058
     Dates: start: 20151008
  5. XOLAIR [Suspect]
     Active Substance: OMALIZUMAB
     Dosage: UNK
     Route: 058
     Dates: start: 2016
  6. XOLAIR [Suspect]
     Active Substance: OMALIZUMAB
     Route: 058
     Dates: start: 20150730

REACTIONS (41)
  - Respiratory arrest [Unknown]
  - Chills [Unknown]
  - Rhinitis [Unknown]
  - Exercise tolerance decreased [Unknown]
  - Asthma [Unknown]
  - Bronchospasm [Unknown]
  - Body temperature increased [Unknown]
  - Seasonal allergy [Unknown]
  - Nasal oedema [Unknown]
  - Nasal congestion [Recovering/Resolving]
  - Urinary tract infection [Unknown]
  - Wheezing [Unknown]
  - Chest discomfort [Unknown]
  - Poor quality sleep [Unknown]
  - Dyspnoea exertional [Unknown]
  - Hypersensitivity [Unknown]
  - Rubber sensitivity [Unknown]
  - Headache [Unknown]
  - Laryngitis [Recovering/Resolving]
  - Sinusitis [Unknown]
  - Middle insomnia [Unknown]
  - Dyspnoea [Unknown]
  - Lymphadenopathy [Unknown]
  - Anosmia [Unknown]
  - Nasal polyps [Unknown]
  - Erythema [Unknown]
  - Bronchitis [Unknown]
  - Nasopharyngitis [Unknown]
  - Dysphonia [Unknown]
  - Sputum discoloured [Unknown]
  - Body temperature decreased [Unknown]
  - Exposure to allergen [Unknown]
  - Pyrexia [Recovering/Resolving]
  - Ageusia [Unknown]
  - Productive cough [Unknown]
  - Cough [Unknown]
  - Abdominal pain [Unknown]
  - Influenza [Unknown]
  - Upper-airway cough syndrome [Unknown]
  - Rhinorrhoea [Recovering/Resolving]
  - Sensitivity to weather change [Unknown]

NARRATIVE: CASE EVENT DATE: 201501
